FAERS Safety Report 9054183 (Version 3)
Quarter: 2013Q2

REPORT INFORMATION
  Report Type: Spontaneous
  Country: US (occurrence: US)
  Receive Date: 20130208
  Receipt Date: 20130508
  Transmission Date: 20140414
  Serious: Yes (Hospitalization)
  Sender: FDA-Public Use
  Company Number: US-ASTRAZENECA-2013SE07360

PATIENT
  Age: 682 Month
  Sex: Male
  Weight: 105.7 kg

DRUGS (11)
  1. SYMBICORT PMDI [Suspect]
     Indication: CHRONIC OBSTRUCTIVE PULMONARY DISEASE
     Dosage: 160/4.5 MCG, BID
     Route: 055
     Dates: start: 2000
  2. SYMBICORT PMDI [Suspect]
     Indication: CHRONIC OBSTRUCTIVE PULMONARY DISEASE
     Dosage: 160/4.5 MCG, 2 PUFFS, BID
     Route: 055
     Dates: start: 2011
  3. SEROQUEL [Suspect]
     Dosage: GENERIC
     Route: 048
  4. KLONOPIN [Suspect]
     Indication: BIPOLAR DISORDER
     Route: 048
     Dates: start: 2000, end: 20130122
  5. LAMICTAL [Suspect]
     Indication: BIPOLAR DISORDER
     Route: 048
     Dates: start: 2000
  6. BABY ASPIRIN [Concomitant]
     Indication: BONE MARROW DISORDER
     Route: 048
  7. SPIRIVA [Concomitant]
  8. SINGULAIR [Concomitant]
  9. ALBUTEROL [Concomitant]
  10. HALOPERIDOL [Concomitant]
  11. NEURONTIN [Concomitant]

REACTIONS (3)
  - Diverticulitis [Recovering/Resolving]
  - Suicidal ideation [Recovering/Resolving]
  - Bipolar I disorder [Unknown]
